FAERS Safety Report 10370210 (Version 2)
Quarter: 2014Q3

REPORT INFORMATION
  Report Type: Report from Study
  Country: BR (occurrence: BR)
  Receive Date: 20140808
  Receipt Date: 20140904
  Transmission Date: 20150326
  Serious: Yes (Other)
  Sender: FDA-Public Use
  Company Number: PHHY2014BR097007

PATIENT
  Age: 32 Year
  Sex: Female
  Weight: 61 kg

DRUGS (3)
  1. FOLIC ACID. [Concomitant]
     Active Substance: FOLIC ACID
     Indication: SICKLE CELL ANAEMIA
     Dosage: 1 DF, DAILY
     Route: 048
     Dates: start: 198705
  2. EXJADE [Suspect]
     Active Substance: DEFERASIROX
     Indication: SICKLE CELL ANAEMIA
     Dosage: 2 DF, IN THE MORNING (IN FASTING)
     Route: 048
  3. FOLIC ACID. [Concomitant]
     Active Substance: FOLIC ACID
     Indication: URINARY TRACT INFECTION

REACTIONS (1)
  - Teratoma [Recovering/Resolving]

NARRATIVE: CASE EVENT DATE: 201403
